FAERS Safety Report 21075717 (Version 2)
Quarter: 2022Q3

REPORT INFORMATION
  Report Type: Spontaneous
  Country: AR (occurrence: AR)
  Receive Date: 20220713
  Receipt Date: 20220802
  Transmission Date: 20221026
  Serious: Yes (Other)
  Sender: FDA-Public Use
  Company Number: AR-009507513-2206ARG004659

PATIENT
  Age: 78 Year
  Sex: Female

DRUGS (4)
  1. JANUVIA [Suspect]
     Active Substance: SITAGLIPTIN PHOSPHATE
     Indication: Diabetes mellitus
     Dosage: 100 MILLIGRAM, 1 DOSAGE FORM, DAILY
     Route: 048
  2. CORASOL [NISOLDIPINE] [Concomitant]
     Indication: Hypertension
  3. ATENOLOL [Concomitant]
     Active Substance: ATENOLOL
     Indication: Cardiac disorder
  4. METFORMIN [Concomitant]
     Active Substance: METFORMIN HYDROCHLORIDE
     Indication: Diabetes mellitus

REACTIONS (7)
  - Cataract [Unknown]
  - Malaise [Unknown]
  - Fear [Unknown]
  - Nervousness [Unknown]
  - Anxiety [Unknown]
  - Product dose omission issue [Unknown]
  - Product use issue [Unknown]
